FAERS Safety Report 9157540 (Version 1)
Quarter: 2013Q1

REPORT INFORMATION
  Report Type: Spontaneous
  Country: US (occurrence: None)
  Receive Date: 20130219
  Receipt Date: 20130219
  Transmission Date: 20140127
  Serious: Yes (Other)
  Sender: FDA-Public Use
  Company Number: DKLU1088904

PATIENT
  Age: 3 Year
  Sex: Male

DRUGS (1)
  1. ELSPAR (ASPARAGINASE) [Suspect]
     Indication: B PRECURSOR TYPE ACUTE LEUKAEMIA

REACTIONS (3)
  - Arterial thrombosis [None]
  - Gangrene [None]
  - Leg amputation [None]
